FAERS Safety Report 8142572-X (Version None)
Quarter: 2012Q1

REPORT INFORMATION
  Report Type: 
  Country: None (occurrence: None)
  Receive Date: 20120103
  Receipt Date: 20110824
  Transmission Date: 20120608
  Serious: No
  Sender: FDA-Public Use
  Company Number: AE-2011-001104

PATIENT
  Age: 59 Year
  Sex: Female
  Weight: 77.1115 kg

DRUGS (5)
  1. PEGASYS [Concomitant]
  2. LORAZEPAM [Concomitant]
  3. COPEGUS [Concomitant]
  4. NADOLOL [Concomitant]
  5. INCIVEK [Suspect]
     Dosage: 2250 MG (750 MG, 3 IN 1 D), ORAL
     Route: 048
     Dates: start: 20110820

REACTIONS (3)
  - NAUSEA [None]
  - ANORECTAL DISCOMFORT [None]
  - VOMITING [None]
